FAERS Safety Report 4311828-0 (Version None)
Quarter: 2004Q1

REPORT INFORMATION
  Report Type: 
  Country: None (occurrence: None)
  Receive Date: 20040304
  Receipt Date: 20030130
  Transmission Date: 20041129
  Serious: Yes (Death, Hospitalization, Other)
  Sender: FDA-Public Use
  Company Number: WAES 0302USA00116

PATIENT
  Age: 78 Year
  Sex: Female
  Weight: 89 kg

DRUGS (7)
  1. LOMOTIL [Concomitant]
  2. PLAVIX [Concomitant]
  3. HYDROCHLOROTHIAZIDE [Concomitant]
  4. EVISTA [Concomitant]
  5. VIOXX [Suspect]
     Indication: ARTHRITIS
     Route: 048
     Dates: end: 20010228
  6. ZOCOR [Concomitant]
     Route: 048
  7. ULTRAM [Concomitant]

REACTIONS (20)
  - ARTERIOSCLEROSIS MOENCKEBERG-TYPE [None]
  - ASPIRATION [None]
  - ATRIOVENTRICULAR BLOCK FIRST DEGREE [None]
  - BLOOD GLUCOSE INCREASED [None]
  - BLOOD POTASSIUM INCREASED [None]
  - BLOOD PRESSURE DECREASED [None]
  - CEREBROSCLEROSIS [None]
  - DEEP VEIN THROMBOSIS [None]
  - ELECTROENCEPHALOGRAM ABNORMAL [None]
  - GRAND MAL CONVULSION [None]
  - INFLAMMATION [None]
  - INJURY [None]
  - MASTOID DISORDER [None]
  - NERVOUS SYSTEM DISORDER [None]
  - PULMONARY EMBOLISM [None]
  - RESPIRATION ABNORMAL [None]
  - RESPIRATORY FAILURE [None]
  - RHINITIS [None]
  - STATUS EPILEPTICUS [None]
  - WHITE BLOOD CELL COUNT INCREASED [None]
